FAERS Safety Report 24393677 (Version 1)
Quarter: 2024Q4

REPORT INFORMATION
  Report Type: Spontaneous
  Country: FR (occurrence: FR)
  Receive Date: 20241003
  Receipt Date: 20241003
  Transmission Date: 20250114
  Serious: Yes (Hospitalization, Other)
  Sender: GILEAD
  Company Number: FR-GILEAD-2024-0689345

PATIENT
  Age: 84 Year
  Sex: Male

DRUGS (1)
  1. YESCARTA [Suspect]
     Active Substance: AXICABTAGENE CILOLEUCEL
     Indication: Diffuse large B-cell lymphoma stage IV
     Dosage: UNK
     Route: 042
     Dates: start: 20240822, end: 20240822

REACTIONS (2)
  - Prostatitis [Unknown]
  - Cytokine release syndrome [Unknown]
